FAERS Safety Report 19473749 (Version 1)
Quarter: 2021Q2

REPORT INFORMATION
  Report Type: Spontaneous
  Country: FR (occurrence: FR)
  Receive Date: 20210629
  Receipt Date: 20210629
  Transmission Date: 20210717
  Serious: Yes (Hospitalization)
  Sender: FDA-Public Use
  Company Number: FR-CELGENEUS-FRA-20210605979

PATIENT
  Age: 74 Year
  Sex: Male
  Weight: 67 kg

DRUGS (18)
  1. LENALIDOMIDE [Suspect]
     Active Substance: LENALIDOMIDE
     Indication: PLASMA CELL MYELOMA
     Dosage: 28 MILLIGRAM
     Route: 048
     Dates: start: 20150923
  2. DOLIPRANE [Concomitant]
     Active Substance: ACETAMINOPHEN
     Indication: MUSCLE CONTRACTURE
     Dosage: 1 GRAM
     Route: 048
     Dates: start: 201608
  3. TIORFAN [Concomitant]
     Active Substance: RACECADOTRIL
     Dosage: 900 MILLIGRAM
     Route: 048
     Dates: start: 20200311
  4. ELIQUIS [Concomitant]
     Active Substance: APIXABAN
     Indication: THROMBOSIS PROPHYLAXIS
     Dosage: 5 MILLIGRAM
     Route: 048
     Dates: start: 20201118
  5. DARATUMUMAB [Concomitant]
     Active Substance: DARATUMUMAB
     Indication: PLASMA CELL MYELOMA
     Route: 065
     Dates: start: 20150923, end: 202007
  6. ZELITREX [Concomitant]
     Active Substance: VALACYCLOVIR HYDROCHLORIDE
     Indication: ANTIVIRAL PROPHYLAXIS
     Dosage: 1000 GRAM
     Route: 048
     Dates: start: 20150923
  7. SMECTA [Concomitant]
     Active Substance: MONTMORILLONITE
     Dosage: 3 SACHET
     Route: 048
     Dates: start: 20200311
  8. DALACINE [Concomitant]
     Active Substance: CLINDAMYCIN
     Indication: OSTEITIS
     Dosage: 600 MILLIGRAM
     Route: 048
     Dates: start: 20191202
  9. DEXAMETHASONE. [Suspect]
     Active Substance: DEXAMETHASONE
     Indication: PLASMA CELL MYELOMA
     Dosage: 40 MILLIGRAM
     Route: 048
     Dates: start: 20150923, end: 20210407
  10. LOVENOX [Concomitant]
     Active Substance: ENOXAPARIN SODIUM
     Indication: THROMBOSIS PROPHYLAXIS
     Dosage: 4000 IU
     Route: 058
     Dates: start: 20160113
  11. SMECTA [Concomitant]
     Active Substance: MONTMORILLONITE
     Indication: DIARRHOEA
     Dosage: 3 SACHET
     Route: 048
     Dates: start: 20160313
  12. NIVESTIM [Concomitant]
     Active Substance: FILGRASTIM
     Indication: NEUTROPENIA
     Route: 058
     Dates: start: 20200603
  13. TIORFAN [Concomitant]
     Active Substance: RACECADOTRIL
     Indication: DIARRHOEA
     Dosage: 900 MILLIGRAM
     Route: 048
     Dates: start: 20190313
  14. ELUDRIL [Concomitant]
     Indication: OSTEITIS
     Route: 061
     Dates: start: 20191125
  15. ULTRAPROCT [Concomitant]
     Indication: RECTAL HAEMORRHAGE
     Dosage: 1 DOSAGE FORMS
     Route: 054
     Dates: start: 20200602
  16. DARATUMUMAB [Concomitant]
     Active Substance: DARATUMUMAB
     Dosage: 60 MILLIGRAM
     Route: 058
     Dates: start: 20200701
  17. CHLORHEXIDINE GLUCONATE. [Concomitant]
     Active Substance: CHLORHEXIDINE GLUCONATE
     Indication: OSTEONECROSIS
     Route: 061
     Dates: start: 20181001
  18. MAGNE B6 [Concomitant]
     Active Substance: MAGNESIUM\PYRIDOXINE
     Indication: PROPHYLAXIS
     Dosage: 2 DOSAGE FORMS
     Route: 048
     Dates: start: 20190313

REACTIONS (1)
  - Inguinal hernia [Recovered/Resolved]

NARRATIVE: CASE EVENT DATE: 20210413
